FAERS Safety Report 9922731 (Version 1)
Quarter: 2014Q1

REPORT INFORMATION
  Report Type: Spontaneous
  Country: FR (occurrence: FR)
  Receive Date: 20140225
  Receipt Date: 20140225
  Transmission Date: 20141002
  Serious: Yes (Other)
  Sender: FDA-Public Use
  Company Number: FR-ABBVIE-14P-056-1202940-00

PATIENT
  Age: 49 Year
  Sex: Male

DRUGS (9)
  1. NORVIR [Suspect]
     Indication: HIV INFECTION
     Route: 048
     Dates: start: 20051005
  2. FUZEON [Suspect]
     Indication: HIV INFECTION
     Dosage: STOPPED FOR UNSPECIFIED AE
     Route: 048
     Dates: start: 20080220, end: 20090324
  3. FUZEON [Suspect]
     Route: 048
     Dates: start: 201307
  4. LEVOCARNIL [Suspect]
     Indication: PRODUCT USED FOR UNKNOWN INDICATION
     Route: 048
     Dates: start: 2008
  5. BACTRIM [Suspect]
     Indication: PROPHYLAXIS
     Route: 048
     Dates: start: 2008
  6. LOPERAMIDE [Suspect]
     Indication: DIARRHOEA
     Route: 048
     Dates: start: 2008
  7. INEGY [Suspect]
     Indication: HYPERCHOLESTEROLAEMIA
     Route: 048
     Dates: end: 200812
  8. APTIVUS [Suspect]
     Indication: HIV INFECTION
     Route: 048
     Dates: start: 20080220
  9. TRUVADA [Suspect]
     Indication: PRODUCT USED FOR UNKNOWN INDICATION
     Route: 048
     Dates: start: 20080220

REACTIONS (3)
  - Colour blindness acquired [Unknown]
  - Chromatopsia [Unknown]
  - Retinal disorder [Unknown]
